FAERS Safety Report 5868444-9 (Version None)
Quarter: 2008Q3

REPORT INFORMATION
  Report Type: 
  Country: None (occurrence: None)
  Receive Date: 20080903
  Receipt Date: 20080826
  Transmission Date: 20090109
  Serious: Yes (Hospitalization)
  Sender: FDA-Public Use
  Company Number: PT-ASTRAZENECA-2008AC02289

PATIENT
  Sex: Male

DRUGS (2)
  1. CRESTOR [Suspect]
     Indication: DYSLIPIDAEMIA
     Route: 048
  2. CRESTOR [Suspect]
     Route: 048

REACTIONS (1)
  - NEPHROTIC SYNDROME [None]
